FAERS Safety Report 14768172 (Version 1)
Quarter: 2018Q2

REPORT INFORMATION
  Report Type: Spontaneous
  Country: US (occurrence: US)
  Receive Date: 20180417
  Receipt Date: 20180417
  Transmission Date: 20180711
  Serious: No
  Sender: FDA-Public Use
  Company Number: US-BAYER-2018-066620

PATIENT
  Age: 82 Year
  Sex: Female
  Weight: 66.98 kg

DRUGS (5)
  1. BABY ASPIRIN [Concomitant]
     Active Substance: ASPIRIN
  2. VALSARTAN. [Concomitant]
     Active Substance: VALSARTAN
  3. SIMVASTATIN. [Concomitant]
     Active Substance: SIMVASTATIN
  4. GLUCOSAMINE [Concomitant]
     Active Substance: GLUCOSAMINE
  5. ALEVE [Suspect]
     Active Substance: NAPROXEN SODIUM
     Indication: PAIN
     Dosage: 2 DF, PRN
     Route: 048
     Dates: start: 201803, end: 20180404

REACTIONS (3)
  - Product prescribing issue [Unknown]
  - Incorrect dosage administered [Unknown]
  - Expired product administered [Unknown]

NARRATIVE: CASE EVENT DATE: 201803
